FAERS Safety Report 13335327 (Version 1)
Quarter: 2017Q1

REPORT INFORMATION
  Report Type: Spontaneous
  Country: US (occurrence: US)
  Receive Date: 20170314
  Receipt Date: 20170314
  Transmission Date: 20170428
  Serious: No
  Sender: FDA-Public Use
  Company Number: US-GALDERMA-US16004531

PATIENT
  Age: 25 Year
  Sex: Female

DRUGS (2)
  1. TRI-LUMA [Suspect]
     Active Substance: FLUOCINOLONE ACETONIDE\HYDROQUINONE\TRETINOIN
     Indication: PIGMENTATION DISORDER
     Route: 061
     Dates: start: 2016
  2. TRI-LUMA [Suspect]
     Active Substance: FLUOCINOLONE ACETONIDE\HYDROQUINONE\TRETINOIN
     Indication: PIGMENTATION DISORDER
     Route: 061
     Dates: start: 2016, end: 2016

REACTIONS (5)
  - Erythema [Recovering/Resolving]
  - Skin hypopigmentation [Recovering/Resolving]
  - Off label use [Recovered/Resolved]
  - Incorrect product storage [Recovered/Resolved]
  - Skin exfoliation [Recovering/Resolving]

NARRATIVE: CASE EVENT DATE: 2016
